FAERS Safety Report 14403334 (Version 2)
Quarter: 2018Q1

REPORT INFORMATION
  Report Type: Report from Study
  Country: NL (occurrence: NL)
  Receive Date: 20180117
  Receipt Date: 20180329
  Transmission Date: 20180509
  Serious: Yes (Death, Hospitalization)
  Sender: FDA-Public Use
  Company Number: PHHO2017NL008135

PATIENT
  Age: 63 Year
  Sex: Female

DRUGS (1)
  1. LBH589 [Suspect]
     Active Substance: PANOBINOSTAT
     Indication: ACUTE MYELOID LEUKAEMIA
     Dosage: 20 MG, UNK
     Route: 048
     Dates: start: 20170411, end: 20170421

REACTIONS (2)
  - Gastroenteritis [Recovered/Resolved]
  - Cholangitis infective [Fatal]

NARRATIVE: CASE EVENT DATE: 20170509
